FAERS Safety Report 10751479 (Version 1)
Quarter: 2015Q1

REPORT INFORMATION
  Report Type: Spontaneous
  Country: US (occurrence: None)
  Receive Date: 20150129
  Receipt Date: 20150129
  Transmission Date: 20150721
  Serious: No
  Sender: FDA-Public Use
  Company Number: None

PATIENT
  Age: 68 Year
  Sex: Female

DRUGS (1)
  1. HUMIRA [Suspect]
     Active Substance: ADALIMUMAB
     Indication: PSORIASIS
     Route: 058
     Dates: start: 20141021, end: 201412

REACTIONS (4)
  - Palpitations [None]
  - Rash pruritic [None]
  - Chest pain [None]
  - Feeling abnormal [None]

NARRATIVE: CASE EVENT DATE: 201412
